FAERS Safety Report 23513132 (Version 1)
Quarter: 2024Q1

REPORT INFORMATION
  Report Type: Spontaneous
  Country: US (occurrence: None)
  Receive Date: 20240209
  Receipt Date: 20240209
  Transmission Date: 20240410
  Serious: Yes (Hospitalization)
  Sender: FDA-Public Use
  Company Number: None

PATIENT
  Sex: Female

DRUGS (3)
  1. XELJANZ [Suspect]
     Active Substance: TOFACITINIB CITRATE
     Indication: Acute respiratory failure
     Dosage: FREQUENCY : TWICE A DAY;?
     Route: 048
     Dates: start: 202311
  2. XELJANZ [Suspect]
     Active Substance: TOFACITINIB CITRATE
     Indication: Hypoxia
  3. PULMOZYME [Concomitant]
     Active Substance: DORNASE ALFA

REACTIONS (1)
  - Hospitalisation [None]
